FAERS Safety Report 13614022 (Version 2)
Quarter: 2017Q3

REPORT INFORMATION
  Report Type: Spontaneous
  Country: DE (occurrence: DE)
  Receive Date: 20170606
  Receipt Date: 20170810
  Transmission Date: 20171127
  Serious: Yes (Other)
  Sender: FDA-Public Use
  Company Number: DE-SUN PHARMACEUTICAL INDUSTRIES LTD-2017RR-142158

PATIENT
  Sex: Female

DRUGS (5)
  1. COTRIMOXAZOLE [Suspect]
     Active Substance: SULFAMETHOXAZOLE\TRIMETHOPRIM
     Indication: PYREXIA
  2. CIPRO [Suspect]
     Active Substance: CIPROFLOXACIN HYDROCHLORIDE
     Indication: CYSTITIS
     Route: 048
  3. CIPRO [Suspect]
     Active Substance: CIPROFLOXACIN HYDROCHLORIDE
     Indication: BACTERAEMIA
  4. COTRIMOXAZOLE [Suspect]
     Active Substance: SULFAMETHOXAZOLE\TRIMETHOPRIM
     Indication: CHILLS
     Dosage: UNK
     Route: 065
  5. CIPRO [Suspect]
     Active Substance: CIPROFLOXACIN HYDROCHLORIDE
     Indication: HAEMATURIA

REACTIONS (9)
  - Fungaemia [Recovered/Resolved]
  - Posture abnormal [Recovered/Resolved]
  - Dysuria [Recovered/Resolved]
  - Haemorrhoids [Recovered/Resolved]
  - Genital swelling [Recovered/Resolved]
  - Libido decreased [Recovered/Resolved]
  - Chills [Recovered/Resolved]
  - Non-consummation [Recovered/Resolved]
  - Pyrexia [Recovered/Resolved]
